FAERS Safety Report 20559087 (Version 2)
Quarter: 2022Q1

REPORT INFORMATION
  Report Type: Spontaneous
  Country: IT (occurrence: IT)
  Receive Date: 20220307
  Receipt Date: 20220330
  Transmission Date: 20220424
  Serious: Yes (Death, Other)
  Sender: FDA-Public Use
  Company Number: IT-MYLANLABS-2022M1017128

PATIENT
  Sex: Male

DRUGS (5)
  1. ACETAMINOPHEN [Suspect]
     Active Substance: ACETAMINOPHEN
     Indication: Analgesic therapy
     Dosage: UNK
     Route: 065
  2. ACETAMINOPHEN [Suspect]
     Active Substance: ACETAMINOPHEN
     Indication: Pain
  3. ACETAMINOPHEN\TRAMADOL [Suspect]
     Active Substance: ACETAMINOPHEN\TRAMADOL
     Indication: Analgesic therapy
     Dosage: UNK
     Route: 065
  4. TRAMADOL [Suspect]
     Active Substance: TRAMADOL
     Indication: Analgesic therapy
     Dosage: UNK
  5. TRAMADOL [Suspect]
     Active Substance: TRAMADOL
     Indication: Pain

REACTIONS (6)
  - Overdose [Fatal]
  - Myocardial fibrosis [Fatal]
  - Oedema [Fatal]
  - Death [Fatal]
  - Drug abuse [Fatal]
  - Pulmonary oedema [Fatal]
